FAERS Safety Report 9523046 (Version 1)
Quarter: 2013Q3

REPORT INFORMATION
  Report Type: Spontaneous
  Country: US (occurrence: US)
  Receive Date: 20130913
  Receipt Date: 20130913
  Transmission Date: 20140515
  Serious: Yes (Other)
  Sender: FDA-Public Use
  Company Number: CHPA2013US014011

PATIENT
  Age: 44 Year
  Sex: Male

DRUGS (1)
  1. MAALOX ANTACID TABLETS - UNKNOWN [Suspect]
     Dosage: MATERNAL DOSE: 8 TO 10 DF/ DAY
     Route: 064
     Dates: start: 1969, end: 1969

REACTIONS (2)
  - Gastric ulcer [Not Recovered/Not Resolved]
  - Foetal exposure during pregnancy [Unknown]
